FAERS Safety Report 8296303-3 (Version None)
Quarter: 2012Q1

REPORT INFORMATION
  Report Type: 
  Country: None (occurrence: None)
  Receive Date: 20120322
  Receipt Date: 20120111
  Transmission Date: 20120608
  Serious: Yes (Hospitalization)
  Sender: FDA-Public Use
  Company Number: UTC-014540

PATIENT
  Age: 47 Year
  Sex: Male
  Weight: 100 kg

DRUGS (4)
  1. REVATIO [Concomitant]
  2. TYVASO [Suspect]
     Indication: SICKLE CELL ANAEMIA
     Dosage: 216 MCG (54 MCG, 4 IN 1 D), INHALATION
     Route: 055
     Dates: start: 20110427
  3. DIURETICS (DIURETICS) [Concomitant]
  4. COUMADIN [Concomitant]

REACTIONS (3)
  - SICKLE CELL ANAEMIA WITH CRISIS [None]
  - SYNCOPE [None]
  - DYSPNOEA [None]
